FAERS Safety Report 23781338 (Version 1)
Quarter: 2024Q2

REPORT INFORMATION
  Report Type: Spontaneous
  Country: US (occurrence: US)
  Receive Date: 20240425
  Receipt Date: 20240425
  Transmission Date: 20240716
  Serious: No
  Sender: FDA-Public Use
  Company Number: US-ELI_LILLY_AND_COMPANY-US202404014204

PATIENT
  Age: 74 Year
  Sex: Male

DRUGS (2)
  1. CYRAMZA [Suspect]
     Active Substance: RAMUCIRUMAB
     Indication: Product used for unknown indication
     Dosage: 500 MG, UNKNOWN
     Route: 042
     Dates: start: 202309
  2. CYRAMZA [Suspect]
     Active Substance: RAMUCIRUMAB
     Dosage: 100 MG, UNKNOWN
     Route: 042

REACTIONS (1)
  - Heart rate irregular [Recovering/Resolving]
